FAERS Safety Report 7029636-9 (Version None)
Quarter: 2010Q4

REPORT INFORMATION
  Report Type: 
  Country: None (occurrence: None)
  Receive Date: 20101005
  Receipt Date: 20100928
  Transmission Date: 20110411
  Serious: Yes (Other)
  Sender: FDA-Public Use
  Company Number: US-MERCK-0812USA02716

PATIENT
  Age: 53 Year
  Sex: Female

DRUGS (12)
  1. FOSAMAX [Suspect]
     Indication: OSTEOPOROSIS
     Route: 048
     Dates: start: 19991201
  2. FOSAMAX [Suspect]
     Route: 048
     Dates: start: 20011101, end: 20070101
  3. FOSAMAX [Suspect]
     Route: 048
     Dates: start: 19990901, end: 20060101
  4. PREMPRO [Concomitant]
     Route: 065
  5. FLEXERIL [Concomitant]
     Route: 065
  6. MIDRIN [Concomitant]
     Indication: HEADACHE
     Route: 065
  7. FIORICET [Concomitant]
     Indication: HEADACHE
     Route: 065
  8. PROZAC [Concomitant]
     Route: 065
  9. LODINE [Concomitant]
     Route: 065
  10. CALTRATE + D [Concomitant]
     Route: 065
  11. TYLENOL-500 [Concomitant]
     Route: 065
  12. ACTONEL [Suspect]
     Route: 065
     Dates: start: 20011119

REACTIONS (26)
  - ABDOMINAL PAIN [None]
  - ANAEMIA [None]
  - AORTIC DISORDER [None]
  - ARTERIAL BRUIT [None]
  - ARTERIOSCLEROSIS [None]
  - BONE DENSITY DECREASED [None]
  - CELLULITIS [None]
  - CHRONIC OBSTRUCTIVE PULMONARY DISEASE [None]
  - COLONIC POLYP [None]
  - EXCORIATION [None]
  - FATIGUE [None]
  - HAEMATURIA [None]
  - HEADACHE [None]
  - MALAISE [None]
  - OSTEITIS [None]
  - OSTEOMYELITIS [None]
  - OSTEONECROSIS OF JAW [None]
  - OSTEOPENIA [None]
  - RADICULOPATHY [None]
  - RECTAL HAEMORRHAGE [None]
  - SCOLIOSIS [None]
  - SPINAL COLUMN STENOSIS [None]
  - SPINAL DISORDER [None]
  - SUBMANDIBULAR MASS [None]
  - URINARY TRACT INFECTION [None]
  - VOMITING [None]
